FAERS Safety Report 21710748 (Version 3)
Quarter: 2023Q1

REPORT INFORMATION
  Report Type: Report from Study
  Country: US (occurrence: US)
  Receive Date: 20221212
  Receipt Date: 20230209
  Transmission Date: 20230418
  Serious: No
  Sender: FDA-Public Use
  Company Number: US-002147023-NVSC2022US284090

PATIENT
  Sex: Female

DRUGS (1)
  1. ENTRESTO [Suspect]
     Active Substance: SACUBITRIL\VALSARTAN
     Indication: Product used for unknown indication
     Dosage: 100 MG, BID
     Route: 048
     Dates: start: 202209

REACTIONS (9)
  - Weight decreased [Recovering/Resolving]
  - Arthralgia [Unknown]
  - Taste disorder [Unknown]
  - Sleep apnoea syndrome [Unknown]
  - Dyspnoea [Unknown]
  - Blood sodium decreased [Unknown]
  - Back pain [Not Recovered/Not Resolved]
  - Neck pain [Unknown]
  - Condition aggravated [Unknown]
